FAERS Safety Report 15702181 (Version 1)
Quarter: 2018Q4

REPORT INFORMATION
  Report Type: Spontaneous
  Country: JP (occurrence: JP)
  Receive Date: 20181209
  Receipt Date: 20181209
  Transmission Date: 20190205
  Serious: Yes (Other)
  Sender: FDA-Public Use
  Company Number: JP-BRISTOL-MYERS SQUIBB COMPANY-BMS-2018-113418

PATIENT
  Age: 9 Decade
  Sex: Female

DRUGS (1)
  1. EMPLICITI [Suspect]
     Active Substance: ELOTUZUMAB
     Indication: PLASMA CELL MYELOMA
     Dosage: 10 MG/KG, QWK
     Route: 041
     Dates: start: 20180928

REACTIONS (1)
  - Disseminated intravascular coagulation [Recovered/Resolved]
